FAERS Safety Report 24358708 (Version 4)
Quarter: 2025Q3

REPORT INFORMATION
  Report Type: Spontaneous
  Country: US (occurrence: US)
  Receive Date: 20240924
  Receipt Date: 20250908
  Transmission Date: 20251020
  Serious: No
  Sender: PFIZER
  Company Number: US-PFIZER INC-202400260889

PATIENT
  Age: 81 Year
  Sex: Female
  Weight: 89.36 kg

DRUGS (3)
  1. IBRANCE [Suspect]
     Active Substance: PALBOCICLIB
     Indication: Breast cancer female
     Route: 048
  2. IBRANCE [Suspect]
     Active Substance: PALBOCICLIB
     Route: 048
  3. LETROZOLE [Concomitant]
     Active Substance: LETROZOLE
     Indication: Neoplasm malignant
     Dosage: 2.5 MG, 1X/DAY
     Route: 048

REACTIONS (2)
  - Urinary tract infection [Unknown]
  - Treatment noncompliance [Unknown]
